FAERS Safety Report 17966109 (Version 1)
Quarter: 2020Q2

REPORT INFORMATION
  Report Type: Spontaneous
  Country: US (occurrence: US)
  Receive Date: 20200630
  Receipt Date: 20200630
  Transmission Date: 20200714
  Serious: Yes (Disabling, Other)
  Sender: FDA-Public Use
  Company Number: US-NAPPMUNDI-USA-2020-0156190

PATIENT
  Age: 46 Year
  Sex: Male
  Weight: 75.74 kg

DRUGS (34)
  1. OXYCONTIN [Suspect]
     Active Substance: OXYCODONE HYDROCHLORIDE
     Indication: BACK PAIN
     Dosage: 40 MG, BID
     Route: 048
     Dates: start: 20001115
  2. METHADONE [Suspect]
     Active Substance: METHADONE HYDROCHLORIDE
     Indication: PAIN
     Dosage: 10 MG, QID
     Route: 048
     Dates: start: 20060308
  3. TRAMADOL. [Suspect]
     Active Substance: TRAMADOL
     Indication: PRODUCT USED FOR UNKNOWN INDICATION
     Route: 048
  4. IBUPROFEN. [Suspect]
     Active Substance: IBUPROFEN
     Indication: PAIN
     Dosage: 600 MG, UNK
     Route: 048
  5. OXYCONTIN [Suspect]
     Active Substance: OXYCODONE HYDROCHLORIDE
     Dosage: 10 MG, BID
     Route: 048
     Dates: start: 20080324
  6. DIVALPROEX [Concomitant]
     Active Substance: DIVALPROEX SODIUM
     Indication: PRODUCT USED FOR UNKNOWN INDICATION
     Dosage: 250 MG, QID PRN
     Route: 048
     Dates: start: 20100415
  7. METHADONE [Suspect]
     Active Substance: METHADONE HYDROCHLORIDE
     Dosage: 10 MG, TID
     Route: 048
     Dates: start: 20060613
  8. INDERAL [Concomitant]
     Active Substance: PROPRANOLOL HYDROCHLORIDE
     Indication: PRODUCT USED FOR UNKNOWN INDICATION
     Dosage: 10 MG, BID
     Route: 048
     Dates: start: 20080123
  9. FOSAMAX [Concomitant]
     Active Substance: ALENDRONATE SODIUM
     Indication: PRODUCT USED FOR UNKNOWN INDICATION
     Route: 048
  10. OXYCONTIN [Suspect]
     Active Substance: OXYCODONE HYDROCHLORIDE
     Dosage: 40 MG, TID
     Route: 048
     Dates: start: 20001128
  11. OXYCONTIN [Suspect]
     Active Substance: OXYCODONE HYDROCHLORIDE
     Dosage: 80 MG, TID
     Route: 048
     Dates: start: 20060516
  12. MS CONTIN [Suspect]
     Active Substance: MORPHINE SULFATE
     Indication: PAIN
     Dosage: 100 MG, UNK
     Route: 048
     Dates: start: 20100401
  13. OXYCODONE HCL CR TABLETS (SIMILAR TO NDA 22-272) [Suspect]
     Active Substance: OXYCODONE HYDROCHLORIDE
     Indication: PAIN
     Dosage: 80 MG, BID
     Route: 048
  14. OXYFAST [Suspect]
     Active Substance: OXYCODONE
     Indication: PAIN
     Route: 048
  15. NIOSPAN [Concomitant]
     Indication: PRODUCT USED FOR UNKNOWN INDICATION
     Dosage: 1000 MG, Q2H
     Route: 048
     Dates: start: 20080120
  16. NIASPAN ER [Concomitant]
     Active Substance: NIACIN
     Indication: PRODUCT USED FOR UNKNOWN INDICATION
     Dosage: TWO, 1000 MG, PM
     Route: 048
  17. OXYCONTIN [Suspect]
     Active Substance: OXYCODONE HYDROCHLORIDE
     Dosage: 40 MG, UNK
     Route: 048
     Dates: start: 20070807
  18. OXYCONTIN [Suspect]
     Active Substance: OXYCODONE HYDROCHLORIDE
     Dosage: 80 MG, Q24H
     Route: 048
     Dates: start: 20081113
  19. MS CONTIN [Suspect]
     Active Substance: MORPHINE SULFATE
     Dosage: 60 MG, TID
     Route: 048
     Dates: start: 20080227
  20. OXYCODONE/ ACETAMINOPHEN TABLETS [Suspect]
     Active Substance: ACETAMINOPHEN\OXYCODONE HYDROCHLORIDE
     Indication: PAIN
     Route: 048
  21. OXYCONTIN [Suspect]
     Active Substance: OXYCODONE HYDROCHLORIDE
     Dosage: 80 MG, BID
     Route: 048
     Dates: start: 20050913
  22. OXYCONTIN [Suspect]
     Active Substance: OXYCODONE HYDROCHLORIDE
     Dosage: 160 MG, BID
     Route: 048
     Dates: start: 20100914
  23. HYDROCODONE BITARTRATE AND ACETAMINOPHEN [Suspect]
     Active Substance: ACETAMINOPHEN\HYDROCODONE BITARTRATE
     Indication: PAIN
     Route: 048
  24. OXYCODONE AND ACETAMINOPHEN [Suspect]
     Active Substance: ACETAMINOPHEN\OXYCODONE HYDROCHLORIDE
     Dosage: 5 MG, UNK
     Route: 048
     Dates: start: 20090120
  25. DOLOPHINE [Suspect]
     Active Substance: METHADONE HYDROCHLORIDE
     Indication: PAIN
     Dosage: UNK, TID
     Route: 048
  26. NIOSPAN [Concomitant]
     Dosage: 500 MG, BID
     Dates: start: 20080917
  27. DILAUDID [Suspect]
     Active Substance: HYDROMORPHONE HYDROCHLORIDE
     Indication: PAIN
     Route: 048
  28. OXYCODONE HCL TABLETS (RHODES 91-490) [Suspect]
     Active Substance: OXYCODONE HYDROCHLORIDE
     Indication: PAIN
     Route: 048
  29. OXYCONTIN [Suspect]
     Active Substance: OXYCODONE HYDROCHLORIDE
     Dosage: TWO, 80 MG, BID
     Route: 048
     Dates: start: 20090815
  30. OXYCONTIN [Suspect]
     Active Substance: OXYCODONE HYDROCHLORIDE
     Dosage: 80 MG, AM
     Route: 048
     Dates: start: 20091117
  31. HYDROMORPHONE HCL ORAL SOLUTION (RHODES) [Suspect]
     Active Substance: HYDROMORPHONE HYDROCHLORIDE
     Indication: PAIN
     Route: 048
  32. MORPHINE SULFATE EXTENDED-RELEASE TABLETS (RHODES 74-769, 74-862) [Suspect]
     Active Substance: MORPHINE SULFATE
     Indication: PAIN
     Dosage: 100 MG, TID
     Route: 048
     Dates: start: 20100331
  33. DEPAKOTE [Concomitant]
     Active Substance: DIVALPROEX SODIUM
     Indication: PRODUCT USED FOR UNKNOWN INDICATION
     Dosage: 250 MG, TID
     Route: 048
     Dates: start: 20090923
  34. CALCIUM [Concomitant]
     Active Substance: CALCIUM
     Indication: PRODUCT USED FOR UNKNOWN INDICATION
     Route: 048

REACTIONS (50)
  - Chest discomfort [Unknown]
  - Lymphadenopathy [Unknown]
  - Chest pain [Unknown]
  - Pleural effusion [Unknown]
  - Disturbance in attention [Unknown]
  - Respiratory distress [Unknown]
  - Back disorder [Unknown]
  - Learning disability [Unknown]
  - Hypoaesthesia [Unknown]
  - Oxygen consumption decreased [Unknown]
  - Neuropathy peripheral [Unknown]
  - Dysstasia [Unknown]
  - Nasal congestion [Unknown]
  - Pain in extremity [Unknown]
  - Cough [Unknown]
  - Inadequate analgesia [Unknown]
  - Sinus disorder [Unknown]
  - Asthenia [Unknown]
  - Sitting disability [Unknown]
  - Spinal laminectomy [Unknown]
  - Medical device implantation [Unknown]
  - Loss of personal independence in daily activities [Unknown]
  - Joint range of motion decreased [Unknown]
  - Dysuria [Unknown]
  - Mobility decreased [Unknown]
  - Erectile dysfunction [Unknown]
  - Dyspnoea [Unknown]
  - Arthropod bite [Unknown]
  - Pain [Unknown]
  - Drug dependence [Unknown]
  - Cardiac disorder [Unknown]
  - Pyrexia [Unknown]
  - Oropharyngeal pain [Unknown]
  - Muscle spasms [Unknown]
  - Vomiting [Unknown]
  - Pilonidal cyst [Unknown]
  - Disability [Not Recovered/Not Resolved]
  - Rhinorrhoea [Unknown]
  - Dyspnoea paroxysmal nocturnal [Unknown]
  - Influenza [Unknown]
  - Intervertebral disc operation [Unknown]
  - Tooth infection [Unknown]
  - Hyperhidrosis [Unknown]
  - Productive cough [Unknown]
  - Paraesthesia [Unknown]
  - Spinal fusion surgery [Unknown]
  - Gait disturbance [Unknown]
  - Ill-defined disorder [Unknown]
  - Fatigue [Unknown]
  - Urinary retention [Unknown]

NARRATIVE: CASE EVENT DATE: 20030603
